FAERS Safety Report 4460660-6 (Version None)
Quarter: 2004Q3

REPORT INFORMATION
  Report Type: 
  Country: None (occurrence: None)
  Receive Date: 20040923
  Receipt Date: 20040909
  Transmission Date: 20050211
  Serious: Yes (Hospitalization)
  Sender: FDA-Public Use
  Company Number: 233654K04USA

PATIENT
  Age: 28 Year
  Sex: Female

DRUGS (2)
  1. REBIF [Suspect]
     Indication: MULTIPLE SCLEROSIS
     Dates: start: 20031206, end: 20040301
  2. NOVANTRONE (MITOXANTRONE HYDROCHLORIDE0 [Concomitant]

REACTIONS (15)
  - AGGRESSION [None]
  - ANXIETY [None]
  - BLINDNESS [None]
  - CATHETER RELATED INFECTION [None]
  - COMA [None]
  - CONDITION AGGRAVATED [None]
  - CONFUSIONAL STATE [None]
  - DEEP VEIN THROMBOSIS [None]
  - INFECTION [None]
  - MULTIPLE SCLEROSIS [None]
  - PARANOIA [None]
  - PARAPARESIS [None]
  - PNEUMONIA [None]
  - SEPSIS [None]
  - URINARY TRACT INFECTION [None]
